FAERS Safety Report 9156704 (Version 2)
Quarter: 2013Q1

REPORT INFORMATION
  Report Type: Spontaneous
  Country: US (occurrence: None)
  Receive Date: 20130211
  Receipt Date: 20130222
  Transmission Date: 20140127
  Serious: No
  Sender: FDA-Public Use
  Company Number: SPI201300057

PATIENT
  Age: 22 Year
  Sex: Male

DRUGS (2)
  1. AMITIZA (LUBIPROSTONE) [Suspect]
     Indication: IRRITABLE BOWEL SYNDROME
     Route: 048
  2. MIRALAX [Concomitant]

REACTIONS (1)
  - Dyspnoea [None]
